FAERS Safety Report 6669504-5 (Version None)
Quarter: 2010Q2

REPORT INFORMATION
  Report Type: 
  Country: None (occurrence: None)
  Receive Date: 20100406
  Receipt Date: 20100330
  Transmission Date: 20101027
  Serious: Yes (Hospitalization, Other)
  Sender: FDA-Public Use
  Company Number: PHEH2005US06164

PATIENT
  Sex: Male

DRUGS (6)
  1. ELIDEL [Suspect]
     Indication: ECZEMA
     Dosage: TWICE DAILY
     Route: 061
     Dates: start: 20021001, end: 20041001
  2. ENALAPRIL MALEATE [Concomitant]
  3. ATENOLOL [Concomitant]
  4. NORVASC [Concomitant]
  5. CLONIDINE [Concomitant]
  6. PREVACID [Concomitant]

REACTIONS (11)
  - ABDOMINAL DISTENSION [None]
  - ABDOMINAL PAIN UPPER [None]
  - ASTIGMATISM [None]
  - COLOUR BLINDNESS [None]
  - EYELID PTOSIS [None]
  - HEPATOBLASTOMA [None]
  - NIGHT BLINDNESS [None]
  - NIGHT SWEATS [None]
  - RETINAL ANOMALY CONGENITAL [None]
  - RETINITIS PIGMENTOSA [None]
  - SURGERY [None]
